FAERS Safety Report 15977138 (Version 1)
Quarter: 2019Q1

REPORT INFORMATION
  Report Type: Spontaneous
  Country: TR (occurrence: TR)
  Receive Date: 20190218
  Receipt Date: 20190218
  Transmission Date: 20190418
  Serious: Yes (Hospitalization, Other)
  Sender: FDA-Public Use
  Company Number: TR-JNJFOC-20190207425

PATIENT
  Age: 63 Year
  Sex: Female

DRUGS (1)
  1. RIVAROXABAN [Suspect]
     Active Substance: RIVAROXABAN
     Indication: ATRIAL FIBRILLATION
     Route: 048

REACTIONS (12)
  - Chest tube insertion [Unknown]
  - Pleural effusion [Recovered/Resolved]
  - Breath sounds abnormal [Unknown]
  - Dyspnoea [Unknown]
  - Haemothorax [Recovered/Resolved]
  - Haemoglobin decreased [Unknown]
  - Product use in unapproved indication [Unknown]
  - Mediastinal haematoma [Unknown]
  - Off label use [Unknown]
  - Heart rate increased [Unknown]
  - Chest pain [Unknown]
  - Haemorrhage [Unknown]
